APPROVED DRUG PRODUCT: NITROGLYCERIN
Active Ingredient: NITROGLYCERIN
Strength: 5MG/ML
Dosage Form/Route: INJECTABLE;INJECTION
Application: A070026 | Product #001
Applicant: INTERNATIONAL MEDICATION SYSTEMS LTD
Approved: Sep 10, 1985 | RLD: No | RS: No | Type: DISCN